FAERS Safety Report 7658067-3 (Version None)
Quarter: 2011Q3

REPORT INFORMATION
  Report Type: 
  Country: None (occurrence: None)
  Receive Date: 20110805
  Receipt Date: 20110726
  Transmission Date: 20111222
  Serious: Yes (Other)
  Sender: FDA-Public Use
  Company Number: US-SHIRE-SPV1-2011-00802

PATIENT
  Sex: Female
  Weight: 16.508 kg

DRUGS (8)
  1. CORTICOSTEROID NOS [Concomitant]
     Indication: RESPIRATORY DISORDER
     Dosage: UNK UNK, UNKNOWN
     Route: 055
  2. MAS (MIXED AMPHETAMINE SALTS) [Suspect]
     Indication: PRODUCT USED FOR UNKNOWN INDICATION
     Dosage: 10 MG(IN THE AFTERNOON), 1X/DAY:QD
     Route: 048
     Dates: start: 20110101
  3. INTUNIV [Suspect]
     Indication: OPPOSITIONAL DEFIANT DISORDER
     Dosage: 2 MG, UNKNOWN
     Route: 048
     Dates: start: 20110101, end: 20110101
  4. GUANFACINE HYDROCHLORIDE [Concomitant]
     Indication: ATTENTION DEFICIT/HYPERACTIVITY DISORDER
     Dosage: 0.5 MG, OTHER (WITH MEALS AND AT BEDTIME)
     Route: 048
     Dates: start: 20110101
  5. VYVANSE [Suspect]
     Indication: ATTENTION DEFICIT/HYPERACTIVITY DISORDER
     Dosage: 50 MG, UNKNOWN
     Route: 048
     Dates: start: 20100101
  6. VYVANSE [Suspect]
     Indication: OPPOSITIONAL DEFIANT DISORDER
  7. GUANFACINE HYDROCHLORIDE [Concomitant]
     Indication: OPPOSITIONAL DEFIANT DISORDER
  8. INTUNIV [Suspect]
     Indication: ATTENTION DEFICIT/HYPERACTIVITY DISORDER
     Dosage: 1 MG, UNKNOWN
     Route: 048
     Dates: start: 20110428, end: 20110101

REACTIONS (8)
  - DRUG EFFECT DECREASED [None]
  - SOMNOLENCE [None]
  - GRAND MAL CONVULSION [None]
  - FEAR [None]
  - SCREAMING [None]
  - MOOD SWINGS [None]
  - DYSKINESIA [None]
  - TREMOR [None]
